FAERS Safety Report 6641545-3 (Version None)
Quarter: 2010Q1

REPORT INFORMATION
  Report Type: 
  Country: None (occurrence: None)
  Receive Date: 20100317
  Receipt Date: 20100317
  Transmission Date: 20100710
  Serious: Yes (Other)
  Sender: FDA-Public Use
  Company Number: None

PATIENT
  Age: 47 Year
  Sex: Female
  Weight: 60.8 kg

DRUGS (11)
  1. MORPHINE SULFATE [Suspect]
     Indication: PAIN
     Dosage: 160 MG Q 8? PO
     Route: 048
     Dates: start: 20100107, end: 20100117
  2. HEPARIN [Concomitant]
  3. APAP TAB [Concomitant]
  4. DOCUSATE [Concomitant]
  5. HYDROMORPHONE HCL [Concomitant]
  6. LIDOCAINE [Concomitant]
  7. LORAZEPAM [Concomitant]
  8. MIROPENEM [Concomitant]
  9. PREGABALIN [Concomitant]
  10. RANITIDINE [Concomitant]
  11. SENNA [Concomitant]

REACTIONS (1)
  - UNRESPONSIVE TO STIMULI [None]
